FAERS Safety Report 24383043 (Version 1)
Quarter: 2024Q4

REPORT INFORMATION
  Report Type: Spontaneous
  Country: CN (occurrence: CN)
  Receive Date: 20241001
  Receipt Date: 20241001
  Transmission Date: 20250115
  Serious: Yes (Other)
  Sender: PFIZER
  Company Number: CN-PFIZER INC-PV202400124956

PATIENT
  Age: 33 Year
  Sex: Male
  Weight: 91.2 kg

DRUGS (6)
  1. CYTARABINE [Suspect]
     Active Substance: CYTARABINE
     Indication: Precursor T-lymphoblastic lymphoma/leukaemia stage IV
     Dosage: 4 G, 1X/DAY
     Route: 041
     Dates: start: 20240913, end: 20240914
  2. CYTARABINE [Suspect]
     Active Substance: CYTARABINE
     Dosage: 4 G, Q12H (AS REPORTED) D2, 3
     Route: 041
     Dates: start: 20240913, end: 20240914
  3. METHOTREXATE SODIUM [Suspect]
     Active Substance: METHOTREXATE SODIUM
     Indication: Precursor T-lymphoblastic lymphoma/leukaemia stage IV
     Dosage: 4 G, 1X/DAY
     Route: 041
     Dates: start: 20240911, end: 20240911
  4. SODIUM CHLORIDE [Concomitant]
     Active Substance: SODIUM CHLORIDE
     Indication: Vehicle solution use
     Dosage: 100 ML, 1X/DAY
     Route: 041
     Dates: start: 20240911, end: 20240911
  5. SODIUM CHLORIDE [Concomitant]
     Active Substance: SODIUM CHLORIDE
     Indication: Vehicle solution use
     Dosage: 500 ML, 1X/DAY
     Route: 041
     Dates: start: 20240913, end: 20240914
  6. SODIUM CHLORIDE [Concomitant]
     Active Substance: SODIUM CHLORIDE
     Dosage: 500 ML, Q12H (AS REPORTED) D2, 3
     Route: 041
     Dates: start: 20240913, end: 20240914

REACTIONS (12)
  - Granulocyte count decreased [Not Recovered/Not Resolved]
  - Melaena [Not Recovered/Not Resolved]
  - Gastrointestinal haemorrhage [Unknown]
  - Platelet count decreased [Not Recovered/Not Resolved]
  - Haemoglobin decreased [Unknown]
  - White blood cell count decreased [Not Recovered/Not Resolved]
  - Red blood cell count decreased [Not Recovered/Not Resolved]
  - Abdominal pain [Unknown]
  - Dizziness [Unknown]
  - Asthenia [Unknown]
  - Chronic gastritis [Unknown]
  - Off label use [Unknown]

NARRATIVE: CASE EVENT DATE: 20240911
